FAERS Safety Report 19841936 (Version 1)
Quarter: 2021Q3

REPORT INFORMATION
  Report Type: Spontaneous
  Country: DE (occurrence: DE)
  Receive Date: 20210916
  Receipt Date: 20210916
  Transmission Date: 20211014
  Serious: Yes (Hospitalization)
  Sender: FDA-Public Use
  Company Number: DE-TEVA-2021-DE-1951957

PATIENT
  Age: 50 Year
  Sex: Female
  Weight: 81 kg

DRUGS (4)
  1. LEVOTHYROXIN?NATRIUM [Concomitant]
     Active Substance: LEVOTHYROXINE SODIUM
     Dosage: 75 MICROGRAM DAILY;   1?0?0?0
     Route: 048
  2. IBUPROFEN. [Suspect]
     Active Substance: IBUPROFEN
     Dosage: 600 MG, IF NECESSARY
     Route: 048
  3. CALCIUM VITAMIN D3 ACIS 500MG/400I.E. [Concomitant]
     Dosage: 1 DOSAGE FORMS DAILY; ?600 | 40 MG, 0?0?1?0,
     Route: 048
  4. SUMATRIPTAN?1A PHARMA 100MG [Concomitant]
     Dosage: IF NECESSARY,
     Route: 048

REACTIONS (4)
  - Transaminases increased [Recovering/Resolving]
  - Hyperhidrosis [Recovering/Resolving]
  - Abdominal pain [Recovering/Resolving]
  - Abdominal pain upper [Recovering/Resolving]
